FAERS Safety Report 12418522 (Version 1)
Quarter: 2016Q2

REPORT INFORMATION
  Report Type: Spontaneous
  Country: US (occurrence: None)
  Receive Date: 20160527
  Receipt Date: 20160527
  Transmission Date: 20160815
  Serious: No
  Sender: FDA-Public Use
  Company Number: None

PATIENT
  Sex: Female
  Weight: 99.79 kg

DRUGS (6)
  1. INVEGA SUSTENNA [Suspect]
     Active Substance: PALIPERIDONE PALMITATE
     Indication: SCHIZOPHRENIA
     Dosage: 234MG/15ML
     Route: 030
     Dates: start: 20140331
  2. ESTAZOLAM. [Concomitant]
     Active Substance: ESTAZOLAM
  3. CABERGOLINE. [Concomitant]
     Active Substance: CABERGOLINE
  4. SYNTHROID [Concomitant]
     Active Substance: LEVOTHYROXINE SODIUM
  5. PROVERA [Concomitant]
     Active Substance: MEDROXYPROGESTERONE ACETATE
  6. DEPAKOTE [Concomitant]
     Active Substance: DIVALPROEX SODIUM

REACTIONS (3)
  - Tremor [None]
  - Drooling [None]
  - Dyskinesia [None]
